FAERS Safety Report 14553326 (Version 1)
Quarter: 2018Q1

REPORT INFORMATION
  Report Type: Spontaneous
  Country: GB (occurrence: GB)
  Receive Date: 20180216
  Receipt Date: 20180216
  Transmission Date: 20180509
  Serious: Yes (Life-Threatening)
  Sender: FDA-Public Use
  Company Number: None

PATIENT
  Sex: Female

DRUGS (1)
  1. YONDELIS [Suspect]
     Active Substance: TRABECTEDIN
     Indication: NEOPLASM MALIGNANT
     Dosage: OTHER FREQUENCY:21 DIAS;?
     Dates: start: 20160609, end: 20160701

REACTIONS (1)
  - Product packaging counterfeit [None]

NARRATIVE: CASE EVENT DATE: 20160609
